FAERS Safety Report 16683795 (Version 1)
Quarter: 2019Q3

REPORT INFORMATION
  Report Type: Spontaneous
  Country: US (occurrence: US)
  Receive Date: 20190624
  Receipt Date: 20190624
  Transmission Date: 20191004
  Serious: No
  Sender: FDA-Public Use
  Company Number: None

PATIENT
  Age: 73 Year
  Sex: Female
  Weight: 94.35 kg

DRUGS (2)
  1. ENBREL [Suspect]
     Active Substance: ETANERCEPT
     Indication: RHEUMATOID ARTHRITIS
     Dosage: AS DIRECTED
     Route: 058
     Dates: start: 201402
  2. ENBREL [Suspect]
     Active Substance: ETANERCEPT
     Indication: OSTEOARTHRITIS
     Dosage: AS DIRECTED
     Route: 058
     Dates: start: 201402

REACTIONS (2)
  - Emergency care [None]
  - Ill-defined disorder [None]
